FAERS Safety Report 11288588 (Version 1)
Quarter: 2015Q3

REPORT INFORMATION
  Report Type: Spontaneous
  Country: HR (occurrence: HR)
  Receive Date: 20150721
  Receipt Date: 20150721
  Transmission Date: 20151125
  Serious: Yes (Life-Threatening, Hospitalization, Other)
  Sender: FDA-Public Use
  Company Number: HR-PFIZER INC-2015238889

PATIENT
  Age: 69 Year
  Sex: Female
  Weight: 92 kg

DRUGS (2)
  1. PROVERA [Suspect]
     Active Substance: MEDROXYPROGESTERONE ACETATE
     Dosage: 10 MG, 1X/DAY
     Route: 048
     Dates: start: 20150401, end: 20150417
  2. HYZAAR [Concomitant]
     Active Substance: HYDROCHLOROTHIAZIDE\LOSARTAN POTASSIUM
     Indication: ESSENTIAL HYPERTENSION
     Dosage: 1 DF, 1X/DAY, 12.5 MG/ 50 MG
     Route: 048

REACTIONS (3)
  - Choking sensation [Recovered/Resolved with Sequelae]
  - Pulmonary embolism [Recovered/Resolved with Sequelae]
  - Dyspnoea [Recovered/Resolved with Sequelae]

NARRATIVE: CASE EVENT DATE: 20150417
